FAERS Safety Report 24591291 (Version 2)
Quarter: 2024Q4

REPORT INFORMATION
  Report Type: Report from Study
  Country: US (occurrence: US)
  Receive Date: 20241108
  Receipt Date: 20241127
  Transmission Date: 20250115
  Serious: Yes (Death, Hospitalization, Other)
  Sender: ACADIA PHARMACEUTICALS
  Company Number: US-ACADIA PHARMACEUTICALS INC.-ACA-2024-PIM-007007

PATIENT
  Age: 63 Year
  Sex: Male

DRUGS (7)
  1. NUPLAZID [Suspect]
     Active Substance: PIMAVANSERIN TARTRATE
     Indication: Parkinson^s disease psychosis
     Dosage: 34 MILLIGRAM, QD
     Route: 048
     Dates: start: 202408, end: 20241018
  2. NUPLAZID [Suspect]
     Active Substance: PIMAVANSERIN TARTRATE
     Indication: Parkinson^s disease
  3. RYTARY [Concomitant]
     Active Substance: CARBIDOPA\LEVODOPA
  4. MYRBETRIQ [Concomitant]
     Active Substance: MIRABEGRON
  5. TAMSULOSIN [Concomitant]
     Active Substance: TAMSULOSIN
  6. QUETIAPINE [Concomitant]
     Active Substance: QUETIAPINE
  7. BUSPIRONE [Concomitant]
     Active Substance: BUSPIRONE HYDROCHLORIDE

REACTIONS (4)
  - Parkinson^s disease [Recovered/Resolved]
  - Failure to thrive [Recovered/Resolved]
  - Encephalopathy [Recovered/Resolved]
  - Terminal state [Unknown]

NARRATIVE: CASE EVENT DATE: 20241012
